FAERS Safety Report 6689938-2 (Version None)
Quarter: 2010Q2

REPORT INFORMATION
  Report Type: 
  Country: None (occurrence: None)
  Receive Date: 20100421
  Receipt Date: 20100412
  Transmission Date: 20101027
  Serious: Yes (Other)
  Sender: FDA-Public Use
  Company Number: BR-ABBOTT-10P-020-0637942-00

PATIENT
  Sex: Male
  Weight: 110 kg

DRUGS (1)
  1. HUMIRA [Suspect]
     Indication: RHEUMATOID ARTHRITIS
     Route: 058

REACTIONS (5)
  - BLOOD GLUCOSE ABNORMAL [None]
  - BLOOD PRESSURE ABNORMAL [None]
  - DYSPNOEA [None]
  - RED BLOOD CELL COUNT INCREASED [None]
  - SERUM FERRITIN INCREASED [None]
